FAERS Safety Report 8897208 (Version 1)
Quarter: 2012Q4

REPORT INFORMATION
  Report Type: 
  Country: US (occurrence: US)
  Receive Date: 20121108
  Receipt Date: 20121108
  Transmission Date: 20130627
  Serious: No
  Sender: FDA-Public Use
  Company Number: US-AMGEN-USASP2012029262

PATIENT
  Age: 40 Year
  Sex: Female
  Weight: 81 kg

DRUGS (7)
  1. ENBREL [Suspect]
     Indication: PRODUCT USED FOR UNKNOWN INDICATION
     Dosage: 50 mg, qwk
     Route: 058
  2. SINGULAIR [Concomitant]
     Dosage: 10 mg, UNK
  3. ZYRTEC [Concomitant]
     Dosage: 5 mg, UNK
  4. ASMANEX [Concomitant]
     Dosage: 110 mug, UNK
  5. CALCIUM W/MAGNESIUM [Concomitant]
  6. AZELASTINE [Concomitant]
  7. VITAMIN D /00107901/ [Concomitant]

REACTIONS (1)
  - Injection site erythema [Unknown]
